FAERS Safety Report 6932587-9 (Version None)
Quarter: 2010Q3

REPORT INFORMATION
  Report Type: 
  Country: None (occurrence: None)
  Receive Date: 20100817
  Receipt Date: 20100805
  Transmission Date: 20110219
  Serious: Yes (Death, Hospitalization, Other)
  Sender: FDA-Public Use
  Company Number: 2009AC00003

PATIENT
  Age: 72 Year
  Sex: Female
  Weight: 63.5036 kg

DRUGS (24)
  1. DIGOXIN [Suspect]
     Dosage: 0.125 MG; PO
     Route: 048
     Dates: start: 20060124, end: 20060915
  2. DIGOXIN [Suspect]
     Indication: ATRIAL FIBRILLATION
     Dosage: 0.25 MG; QD; PO
     Route: 048
     Dates: start: 20050831, end: 20050831
  3. WARFARIN SODIUM [Concomitant]
  4. FUROSEMIDE [Concomitant]
  5. VERAPAMIL [Concomitant]
  6. OXYCO/APAP [Concomitant]
  7. CARDIZEM [Concomitant]
  8. LISINOPRIL [Concomitant]
  9. LORAZEPAM [Concomitant]
  10. TRIAZOLAM [Concomitant]
  11. PAROXETINE [Concomitant]
  12. NITROGLYCERIN [Concomitant]
  13. PROMETHAZINE [Concomitant]
  14. *POTASSIUM [Concomitant]
  15. ALBUTEROL [Concomitant]
  16. ASPIRIN [Concomitant]
  17. OXYGEN [Concomitant]
  18. ZOLOFT [Concomitant]
  19. MULTI-VITAMIN [Concomitant]
  20. NITROGLYCERIN [Concomitant]
  21. CYMBALTA [Concomitant]
  22. LEVAQUIN [Concomitant]
  23. PROPOFOL [Concomitant]
  24. DOPAMINE HCL [Concomitant]

REACTIONS (34)
  - ANGINA PECTORIS [None]
  - ASTHENIA [None]
  - ATRIAL FIBRILLATION [None]
  - BLOOD UREA INCREASED [None]
  - BODY TEMPERATURE INCREASED [None]
  - CARDIO-RESPIRATORY ARREST [None]
  - CARDIOACTIVE DRUG LEVEL INCREASED [None]
  - CARDIOMEGALY [None]
  - CONTUSION [None]
  - DEPRESSION [None]
  - DIARRHOEA [None]
  - DYSPNOEA [None]
  - DYSPNOEA EXERTIONAL [None]
  - ECONOMIC PROBLEM [None]
  - ELECTROCARDIOGRAM ST-T CHANGE [None]
  - FEMALE GENITAL TRACT FISTULA [None]
  - HEART RATE INCREASED [None]
  - HYPERTENSION [None]
  - INTERNATIONAL NORMALISED RATIO INCREASED [None]
  - LUNG DISORDER [None]
  - MULTIPLE INJURIES [None]
  - ORTHOPNOEA [None]
  - OXYGEN SATURATION DECREASED [None]
  - PERIARTHRITIS [None]
  - PNEUMONIA [None]
  - PULMONARY FIBROSIS [None]
  - RALES [None]
  - RESPIRATORY ACIDOSIS [None]
  - RESPIRATORY FAILURE [None]
  - SOMNOLENCE [None]
  - THERAPEUTIC AGENT TOXICITY [None]
  - UNEVALUABLE EVENT [None]
  - URINE OUTPUT DECREASED [None]
  - VENTRICULAR EXTRASYSTOLES [None]
